FAERS Safety Report 21791555 (Version 2)
Quarter: 2022Q4

REPORT INFORMATION
  Report Type: Report from Study
  Country: US (occurrence: US)
  Receive Date: 20221228
  Receipt Date: 20221229
  Transmission Date: 20230113
  Serious: Yes (Other)
  Sender: FDA-Public Use
  Company Number: US-ABBVIE-4251541

PATIENT
  Age: 78 Year
  Sex: Female

DRUGS (1)
  1. RINVOQ [Suspect]
     Active Substance: UPADACITINIB
     Indication: Eczema
     Dosage: END DATE 2022
     Route: 048
     Dates: start: 20221002

REACTIONS (6)
  - Atrial fibrillation [Recovering/Resolving]
  - Off label use [Unknown]
  - Facial bones fracture [Recovering/Resolving]
  - Fall [Recovering/Resolving]
  - Epistaxis [Recovering/Resolving]
  - Loss of consciousness [Unknown]

NARRATIVE: CASE EVENT DATE: 20221215
